FAERS Safety Report 13272212 (Version 1)
Quarter: 2017Q1

REPORT INFORMATION
  Report Type: Spontaneous
  Country: PT (occurrence: PT)
  Receive Date: 20170227
  Receipt Date: 20170227
  Transmission Date: 20170428
  Serious: Yes (Life-Threatening, Hospitalization, Other)
  Sender: FDA-Public Use
  Company Number: PT-BAUSCH-BL-2017-004070

PATIENT
  Age: 9 Month
  Sex: Female

DRUGS (1)
  1. SALICYLIC ACID. [Suspect]
     Active Substance: SALICYLIC ACID
     Indication: PRODUCT USED FOR UNKNOWN INDICATION
     Route: 065

REACTIONS (11)
  - Metabolic acidosis [Recovering/Resolving]
  - Hyperglycaemia [Recovering/Resolving]
  - Acetonaemia [Recovering/Resolving]
  - Accidental exposure to product [Recovering/Resolving]
  - Respiratory alkalosis [Recovering/Resolving]
  - Pulmonary oedema [Recovering/Resolving]
  - Seizure [Recovering/Resolving]
  - Oliguria [Recovering/Resolving]
  - Anion gap increased [Recovering/Resolving]
  - Ketonuria [Recovering/Resolving]
  - Toxicity to various agents [Recovering/Resolving]
